FAERS Safety Report 9436549 (Version 1)
Quarter: 2013Q3

REPORT INFORMATION
  Report Type: Spontaneous
  Country: US (occurrence: US)
  Receive Date: 20130802
  Receipt Date: 20130802
  Transmission Date: 20140515
  Serious: Yes (Hospitalization)
  Sender: FDA-Public Use
  Company Number: US-OPTIMER-20130174

PATIENT
  Age: 72 Year
  Sex: Female

DRUGS (1)
  1. FIDAXOMICIN [Suspect]
     Indication: CLOSTRIDIUM DIFFICILE COLITIS
     Dosage: UNK
     Dates: start: 20130214, end: 20130224

REACTIONS (3)
  - Clostridium difficile colitis [Unknown]
  - Disease recurrence [Unknown]
  - White blood cell count increased [Unknown]
